FAERS Safety Report 5775864-X (Version None)
Quarter: 2008Q2

REPORT INFORMATION
  Report Type: 
  Country: None (occurrence: None)
  Receive Date: 20080617
  Receipt Date: 20080605
  Transmission Date: 20081010
  Serious: Yes (Hospitalization)
  Sender: FDA-Public Use
  Company Number: CH-PFIZER INC-2008044266

PATIENT
  Sex: Male
  Weight: 80 kg

DRUGS (12)
  1. SUTENT [Suspect]
     Indication: METASTATIC RENAL CELL CARCINOMA
     Route: 048
  2. SUTENT [Suspect]
  3. ASPIRIN [Concomitant]
     Route: 048
  4. PLAVIX [Concomitant]
  5. MOVICOL [Concomitant]
  6. INDERAL [Concomitant]
  7. AMLODIPINE [Concomitant]
  8. NEO-MERCAZOLE TAB [Concomitant]
  9. SORTIS [Concomitant]
  10. COVERSUM COMBI [Concomitant]
  11. SYMBICORT [Concomitant]
  12. PHENHYDAN [Concomitant]

REACTIONS (2)
  - CEREBROVASCULAR DISORDER [None]
  - STATUS EPILEPTICUS [None]
